FAERS Safety Report 15997206 (Version 1)
Quarter: 2019Q1

REPORT INFORMATION
  Report Type: Spontaneous
  Country: US (occurrence: US)
  Receive Date: 20190222
  Receipt Date: 20190222
  Transmission Date: 20190418
  Serious: No
  Sender: FDA-Public Use
  Company Number: US-MORTON GROVE PHARMACEUTICALS, INC.-2063072

PATIENT
  Age: 78 Year
  Sex: Female
  Weight: 100 kg

DRUGS (3)
  1. NYSTATIN. [Suspect]
     Active Substance: NYSTATIN
     Indication: CANDIDA INFECTION
     Route: 048
     Dates: start: 20190204, end: 20190204
  2. ADVAIR INHALER BID [Concomitant]
  3. LISINOPRIL. [Concomitant]
     Active Substance: LISINOPRIL

REACTIONS (2)
  - Pain [Recovered/Resolved]
  - Chills [Recovered/Resolved]
